FAERS Safety Report 5864107-4 (Version None)
Quarter: 2008Q3

REPORT INFORMATION
  Report Type: 
  Country: None (occurrence: None)
  Receive Date: 20080829
  Receipt Date: 20080826
  Transmission Date: 20090109
  Serious: Yes (Other)
  Sender: FDA-Public Use
  Company Number: US-JNJFOC-20080805887

PATIENT
  Age: 70 Year
  Sex: Female
  Weight: 104.33 kg

DRUGS (5)
  1. LEVAQUIN [Suspect]
     Indication: PNEUMONIA
     Route: 048
  2. LEVAQUIN [Suspect]
     Indication: URINARY TRACT INFECTION
     Route: 048
  3. SYNTHROID [Concomitant]
     Indication: THYROID HORMONE REPLACEMENT THERAPY
     Route: 048
  4. PRAVASTATIN [Concomitant]
     Indication: BLOOD CHOLESTEROL DECREASED
     Route: 048
  5. DIABETES MEDICINE [Concomitant]
     Indication: DIABETES MELLITUS
     Route: 048

REACTIONS (3)
  - PAIN IN EXTREMITY [None]
  - SCIATICA [None]
  - TENDON DISORDER [None]
